FAERS Safety Report 15206813 (Version 1)
Quarter: 2018Q3

REPORT INFORMATION
  Report Type: Spontaneous
  Country: US (occurrence: US)
  Receive Date: 20180727
  Receipt Date: 20180727
  Transmission Date: 20181010
  Serious: No
  Sender: FDA-Public Use
  Company Number: US-BAYER-2018-136367

PATIENT
  Sex: Female

DRUGS (1)
  1. MIRALAX [Suspect]
     Active Substance: POLYETHYLENE GLYCOL 3350
     Dosage: 238 G, UNK ( IN 64 OZ OF CLEAR LIQUID DOSE)
     Route: 048

REACTIONS (3)
  - Regurgitation [Unknown]
  - Off label use [Unknown]
  - Product prescribing issue [Unknown]
